FAERS Safety Report 6148531-0 (Version None)
Quarter: 2009Q2

REPORT INFORMATION
  Report Type: 
  Country: None (occurrence: None)
  Receive Date: 20090406
  Receipt Date: 20090406
  Transmission Date: 20091009
  Serious: Yes (Other)
  Sender: FDA-Public Use
  Company Number: None

PATIENT
  Age: 46 Year
  Sex: Female
  Weight: 119.7496 kg

DRUGS (1)
  1. PRILOSEC OTC [Suspect]
     Indication: GASTROOESOPHAGEAL REFLUX DISEASE
     Dosage: 1 TABLET DAILY PO
     Route: 048

REACTIONS (4)
  - ARRHYTHMIA [None]
  - OEDEMA PERIPHERAL [None]
  - URINE BILIRUBIN INCREASED [None]
  - VAGINAL HAEMORRHAGE [None]
